FAERS Safety Report 24961990 (Version 1)
Quarter: 2025Q1

REPORT INFORMATION
  Report Type: Spontaneous
  Country: CN (occurrence: CN)
  Receive Date: 20250212
  Receipt Date: 20250212
  Transmission Date: 20250408
  Serious: Yes (Other)
  Sender: PFIZER
  Company Number: CN-PFIZER INC-PV202500016163

PATIENT
  Age: 17 Year
  Sex: Male
  Weight: 97.5 kg

DRUGS (1)
  1. VFEND [Suspect]
     Active Substance: VORICONAZOLE
     Indication: Infection
     Dosage: 200 MG, 2X/DAY
     Route: 041
     Dates: start: 20250117, end: 20250130

REACTIONS (2)
  - Lacrimation increased [Recovering/Resolving]
  - Photophobia [Recovering/Resolving]

NARRATIVE: CASE EVENT DATE: 20250126
